FAERS Safety Report 8117924-4 (Version None)
Quarter: 2012Q1

REPORT INFORMATION
  Report Type: 
  Country: None (occurrence: None)
  Receive Date: 20120131
  Receipt Date: 20120117
  Transmission Date: 20120608
  Serious: Yes (Hospitalization)
  Sender: FDA-Public Use
  Company Number: AUR-APL-2011-05897

PATIENT
  Age: 60 Year
  Sex: Female
  Weight: 71 kg

DRUGS (7)
  1. LEUCOVORIN CALCIUM [Suspect]
     Indication: COLORECTAL CANCER METASTATIC
     Dosage: (400 MG/M2),INTRAVENOUS
     Route: 042
     Dates: start: 20111010, end: 20111121
  2. BISOPROLOL FUMARATE [Suspect]
     Indication: PRODUCT USED FOR UNKNOWN INDICATION
     Dosage: (5 MG), ORAL
     Route: 048
  3. BEVACIZUMAB(BEVACIZUMAB) [Suspect]
     Indication: COLORECTAL CANCER METASTATIC
     Dosage: (5 MG/KG),INTRAVENOUS
     Route: 042
     Dates: start: 20111010, end: 20111121
  4. FLUOROURACIL [Suspect]
     Indication: COLORECTAL CANCER METASTATIC
     Dosage: (400 MG/M2),INTRAVENOUS, (2400 MG/M2),INTRAVENOUS
     Route: 042
     Dates: end: 20111121
  5. FLUOROURACIL [Suspect]
     Indication: COLORECTAL CANCER METASTATIC
     Dosage: (400 MG/M2),INTRAVENOUS, (2400 MG/M2),INTRAVENOUS
     Route: 042
     Dates: start: 20111012
  6. RAMIPRIL [Suspect]
     Indication: PRODUCT USED FOR UNKNOWN INDICATION
     Dosage: (5 MG ), ORAL
     Route: 048
  7. IRINOTECAN HCL [Suspect]
     Indication: COLORECTAL CANCER METASTATIC
     Dosage: (180 MG/M2),INTRAVENOUS
     Route: 042
     Dates: start: 20111010, end: 20111121

REACTIONS (5)
  - FACIAL BONES FRACTURE [None]
  - DEHYDRATION [None]
  - NAUSEA [None]
  - GENERAL PHYSICAL HEALTH DETERIORATION [None]
  - WHITE BLOOD CELL COUNT DECREASED [None]
